FAERS Safety Report 6368490-5 (Version None)
Quarter: 2009Q3

REPORT INFORMATION
  Report Type: 
  Country: None (occurrence: None)
  Receive Date: 20090916
  Receipt Date: 20090908
  Transmission Date: 20100115
  Serious: Yes (Other)
  Sender: FDA-Public Use
  Company Number: DSA_41614_2009

PATIENT
  Sex: Male

DRUGS (1)
  1. XENAZINE [Suspect]
     Indication: DYSTONIA
     Dosage: 12.5 MG, TID,
     Dates: start: 20090506, end: 20090101

REACTIONS (3)
  - HEADACHE [None]
  - HYPOAESTHESIA [None]
  - VISUAL IMPAIRMENT [None]
